FAERS Safety Report 12442868 (Version 5)
Quarter: 2017Q1

REPORT INFORMATION
  Report Type: Spontaneous
  Country: US (occurrence: US)
  Receive Date: 20160607
  Receipt Date: 20170210
  Transmission Date: 20170428
  Serious: Yes (Hospitalization, Other)
  Sender: FDA-Public Use
  Company Number: US-009507513-1606USA000929

PATIENT
  Sex: Female
  Weight: 99.32 kg

DRUGS (2)
  1. NUVARING [Suspect]
     Active Substance: ETHINYL ESTRADIOL\ETONOGESTREL
     Indication: CONTRACEPTION
     Dosage: UNK, UNKNOWN
     Route: 067
     Dates: start: 201405
  2. NUVARING [Suspect]
     Active Substance: ETHINYL ESTRADIOL\ETONOGESTREL
     Dosage: UNK
     Route: 067
     Dates: start: 201211

REACTIONS (24)
  - Chest pain [Unknown]
  - Headache [Unknown]
  - Nausea [Unknown]
  - Obstructive airways disorder [Unknown]
  - Uterine disorder [Unknown]
  - Chest pain [Unknown]
  - Dyspnoea [Unknown]
  - Chest pain [Unknown]
  - Dyspnoea [Unknown]
  - Rhinitis allergic [Unknown]
  - Vitamin D deficiency [Unknown]
  - Uterine disorder [Unknown]
  - Headache [Unknown]
  - Pneumonia [Unknown]
  - Pulmonary embolism [Recovered/Resolved with Sequelae]
  - Chest pain [Unknown]
  - Pain in extremity [Unknown]
  - Obesity [Unknown]
  - Asthma [Unknown]
  - Fatigue [Recovered/Resolved]
  - Swelling [Unknown]
  - Infection [Unknown]
  - Fatigue [Unknown]
  - Galactorrhoea [Recovered/Resolved]

NARRATIVE: CASE EVENT DATE: 201304
